FAERS Safety Report 15255040 (Version 1)
Quarter: 2018Q3

REPORT INFORMATION
  Report Type: Spontaneous
  Country: BR (occurrence: BR)
  Receive Date: 20180808
  Receipt Date: 20180808
  Transmission Date: 20181010
  Serious: Yes (Other)
  Sender: FDA-Public Use
  Company Number: BR-JNJFOC-20180803845

PATIENT
  Age: 59 Year
  Sex: Male

DRUGS (1)
  1. CONCERTA [Suspect]
     Active Substance: METHYLPHENIDATE HYDROCHLORIDE
     Indication: INSOMNIA
     Route: 048
     Dates: start: 201806

REACTIONS (4)
  - Wrong technique in product usage process [Unknown]
  - Product use in unapproved indication [Unknown]
  - Gastrostomy [Unknown]
  - Off label use [Unknown]

NARRATIVE: CASE EVENT DATE: 201806
